FAERS Safety Report 8065319-4 (Version None)
Quarter: 2012Q1

REPORT INFORMATION
  Report Type: 
  Country: None (occurrence: None)
  Receive Date: 20120124
  Receipt Date: 20120122
  Transmission Date: 20120608
  Serious: No
  Sender: FDA-Public Use
  Company Number: US-PFIZER INC-2012017731

PATIENT
  Sex: Female
  Weight: 100 kg

DRUGS (2)
  1. CELEXA [Concomitant]
     Indication: ANGER
     Dosage: 40 MG, DAILY
  2. CHANTIX [Suspect]
     Indication: SMOKING CESSATION THERAPY
     Dosage: UNK
     Dates: start: 20120115

REACTIONS (1)
  - SLEEP DISORDER [None]
